FAERS Safety Report 4337081-X (Version None)
Quarter: 2004Q2

REPORT INFORMATION
  Report Type: 
  Country: None (occurrence: None)
  Receive Date: 20040407
  Receipt Date: 20040323
  Transmission Date: 20050107
  Serious: Yes (Death)
  Sender: FDA-Public Use
  Company Number: 2004-DE-01467GD

PATIENT
  Age: 78 Year
  Sex: Male

DRUGS (1)
  1. PREDNISONE [Suspect]
     Indication: MYELODYSPLASTIC SYNDROME

REACTIONS (12)
  - ACUTE RESPIRATORY DISTRESS SYNDROME [None]
  - CREPITATIONS [None]
  - LUNG INFILTRATION [None]
  - MULTI-ORGAN FAILURE [None]
  - OEDEMA PERIPHERAL [None]
  - OXYGEN SATURATION DECREASED [None]
  - PANCYTOPENIA [None]
  - PLEURAL EFFUSION [None]
  - PULMONARY ALVEOLAR HAEMORRHAGE [None]
  - STRONGYLOIDIASIS [None]
  - TACHYPNOEA [None]
  - VENOUS PRESSURE JUGULAR INCREASED [None]
